FAERS Safety Report 10970622 (Version 2)
Quarter: 2015Q3

REPORT INFORMATION
  Report Type: Spontaneous
  Country: JP (occurrence: JP)
  Receive Date: 20150331
  Receipt Date: 20150909
  Transmission Date: 20151125
  Serious: Yes (Hospitalization, Other)
  Sender: FDA-Public Use
  Company Number: GXJP2015JP000648

PATIENT
  Age: 78 Year
  Sex: Female
  Weight: 44.7 kg

DRUGS (2)
  1. CEFTRIAXONE NA FOR INTRAVENOUS INJECTION [Suspect]
     Active Substance: CEFTRIAXONE
     Indication: URINARY TRACT INFECTION
     Dosage: 1 G, BID
     Route: 041
     Dates: start: 20140213, end: 20140218
  2. CEFTRIAXONE NA FOR INTRAVENOUS INJECTION [Suspect]
     Active Substance: CEFTRIAXONE
     Indication: PYREXIA
     Dosage: 1 G, BID
     Route: 041
     Dates: start: 20140206, end: 20140206

REACTIONS (4)
  - Inflammation [Recovered/Resolved]
  - Bronchitis [Recovered/Resolved]
  - Aspiration bronchial [Recovered/Resolved]
  - Drug-induced liver injury [Recovered/Resolved]

NARRATIVE: CASE EVENT DATE: 20140215
